FAERS Safety Report 11993155 (Version 4)
Quarter: 2016Q1

REPORT INFORMATION
  Report Type: Report from Study
  Country: DE (occurrence: DE)
  Receive Date: 20160203
  Receipt Date: 20160316
  Transmission Date: 20160526
  Serious: Yes (Other)
  Sender: FDA-Public Use
  Company Number: DE-ROCHE-1705074

PATIENT
  Age: 74 Year
  Sex: Female
  Weight: 85 kg

DRUGS (6)
  1. CEFUROXIME. [Concomitant]
     Active Substance: CEFUROXIME
     Indication: PROPHYLAXIS
     Route: 031
     Dates: start: 20130202, end: 20130202
  2. RANIBIZUMAB [Suspect]
     Active Substance: RANIBIZUMAB
     Indication: NEOVASCULAR AGE-RELATED MACULAR DEGENERATION
     Route: 050
     Dates: start: 20140613
  3. RANIBIZUMAB [Suspect]
     Active Substance: RANIBIZUMAB
     Dosage: LAST DOSE PRIOR TO SAE
     Route: 050
     Dates: start: 20150106, end: 20150106
  4. DEXAHEXAL [Concomitant]
     Route: 031
     Dates: start: 20160224
  5. DEXAHEXAL [Concomitant]
     Indication: PROPHYLAXIS
     Route: 031
     Dates: start: 20160202, end: 20160202
  6. CEFUROXIME. [Concomitant]
     Active Substance: CEFUROXIME
     Route: 031
     Dates: start: 20160224

REACTIONS (1)
  - Glaucoma [Recovering/Resolving]

NARRATIVE: CASE EVENT DATE: 20150306
